FAERS Safety Report 6288524-6 (Version None)
Quarter: 2009Q3

REPORT INFORMATION
  Report Type: 
  Country: None (occurrence: None)
  Receive Date: 20090729
  Receipt Date: 20090717
  Transmission Date: 20100115
  Serious: Yes (Other)
  Sender: FDA-Public Use
  Company Number: US-ASTRAZENECA-2009SE05189

PATIENT
  Sex: Female
  Weight: 70.3 kg

DRUGS (2)
  1. METOPROLOL SUCCINATE [Suspect]
     Route: 048
  2. ASPIRIN [Concomitant]

REACTIONS (2)
  - BLOOD PRESSURE INCREASED [None]
  - COELIAC DISEASE [None]
